FAERS Safety Report 18531777 (Version 3)
Quarter: 2021Q1

REPORT INFORMATION
  Report Type: Other
  Country: US (occurrence: US)
  Receive Date: 20201123
  Receipt Date: 20210225
  Transmission Date: 20210419
  Serious: Yes (Other)
  Sender: FDA-Public Use
  Company Number: US-ROCHE-2714889

PATIENT
  Age: 78 Year
  Sex: Female
  Weight: 53.21 kg

DRUGS (7)
  1. VENCLEXTA [Suspect]
     Active Substance: VENETOCLAX
     Indication: ABNORMAL LOSS OF WEIGHT
     Route: 048
  2. REVLIMID [Suspect]
     Active Substance: LENALIDOMIDE
     Indication: PRODUCT USED FOR UNKNOWN INDICATION
     Route: 065
  3. VENCLEXTA [Suspect]
     Active Substance: VENETOCLAX
     Indication: HERPES ZOSTER
     Route: 048
  4. VENCLEXTA [Suspect]
     Active Substance: VENETOCLAX
     Indication: NON-HODGKIN^S LYMPHOMA
     Dosage: TAKE 6 TABLET(S) BY MOUTH (600MG) BY MOUTH EVERY DAY
     Route: 048
  5. GAZYVA [Suspect]
     Active Substance: OBINUTUZUMAB
     Indication: PRODUCT USED FOR UNKNOWN INDICATION
     Route: 042
     Dates: start: 2015
  6. GAZYVA [Suspect]
     Active Substance: OBINUTUZUMAB
     Route: 042
     Dates: start: 20200909, end: 20200923
  7. NEUPOGEN [Concomitant]
     Active Substance: FILGRASTIM

REACTIONS (16)
  - Weight decreased [Unknown]
  - Cataract [Unknown]
  - Conjunctivitis allergic [Unknown]
  - Asthenia [Recovered/Resolved]
  - Breast swelling [Not Recovered/Not Resolved]
  - Musculoskeletal stiffness [Not Recovered/Not Resolved]
  - Blindness unilateral [Unknown]
  - Chills [Recovered/Resolved]
  - Lymphadenopathy [Not Recovered/Not Resolved]
  - Malignant neoplasm progression [Unknown]
  - Illness [Unknown]
  - Neutropenia [Not Recovered/Not Resolved]
  - Herpes zoster [Unknown]
  - Cough [Not Recovered/Not Resolved]
  - Intentional product use issue [Unknown]
  - Off label use [Unknown]

NARRATIVE: CASE EVENT DATE: 2018
